FAERS Safety Report 19821782 (Version 1)
Quarter: 2021Q3

REPORT INFORMATION
  Report Type: Spontaneous
  Country: PL (occurrence: PL)
  Receive Date: 20210913
  Receipt Date: 20210913
  Transmission Date: 20211014
  Serious: Yes (Other)
  Sender: FDA-Public Use
  Company Number: PL-PFIZER INC-202101123903

PATIENT
  Age: 67 Year
  Sex: Male
  Weight: 44 kg

DRUGS (4)
  1. 5?FLUOROURACIL [FLUOROURACIL] [Suspect]
     Active Substance: FLUOROURACIL
     Indication: NEOPLASM MALIGNANT
     Dosage: 568 MG
     Route: 040
     Dates: start: 20210112, end: 20210113
  2. 5?FLUOROURACIL [FLUOROURACIL] [Suspect]
     Active Substance: FLUOROURACIL
     Dosage: 1704 MG
     Route: 042
     Dates: start: 20210112, end: 20210114
  3. OXALIPLATIN. [Suspect]
     Active Substance: OXALIPLATIN
     Indication: NEOPLASM MALIGNANT
     Dosage: 120.7 MG
     Route: 041
     Dates: start: 20210112, end: 20210112
  4. IRINOTECAN HCL [Suspect]
     Active Substance: IRINOTECAN HYDROCHLORIDE
     Indication: NEOPLASM MALIGNANT
     Dosage: 255.6 MG
     Route: 041
     Dates: start: 20210112, end: 20210112

REACTIONS (2)
  - Neutropenia [Recovered/Resolved with Sequelae]
  - Hyponatraemia [Recovered/Resolved with Sequelae]

NARRATIVE: CASE EVENT DATE: 20210126
